FAERS Safety Report 4812691-1 (Version None)
Quarter: 2005Q4

REPORT INFORMATION
  Report Type: 
  Country: None (occurrence: None)
  Receive Date: 20051028
  Receipt Date: 20041108
  Transmission Date: 20060501
  Serious: No
  Sender: FDA-Public Use
  Company Number: US-GLAXOSMITHKLINE-A0533087A

PATIENT
  Age: 44 Year
  Sex: Female

DRUGS (10)
  1. ADVAIR DISKUS 100/50 [Suspect]
     Indication: ASTHMA
     Dosage: 1PUFF TWICE PER DAY
     Route: 055
  2. PROVENTIL [Concomitant]
     Route: 065
  3. BECONASE AQ [Concomitant]
  4. RHINOCORT [Concomitant]
  5. SYNTHROID [Concomitant]
  6. NEXIUM [Concomitant]
     Route: 065
  7. IRON SUPPLEMENT [Concomitant]
  8. PATANOL [Concomitant]
  9. ALLEGRA [Concomitant]
  10. SINGULAIR [Concomitant]

REACTIONS (2)
  - DRUG INEFFECTIVE [None]
  - DYSPNOEA [None]
